FAERS Safety Report 7769205-6 (Version None)
Quarter: 2011Q3

REPORT INFORMATION
  Report Type: 
  Country: None (occurrence: None)
  Receive Date: 20110922
  Receipt Date: 20110916
  Transmission Date: 20111222
  Serious: Yes (Disabling)
  Sender: FDA-Public Use
  Company Number: FR-ROCHE-776458

PATIENT
  Sex: Male
  Weight: 2.3 kg

DRUGS (2)
  1. AMITRIPTYLINE HCL [Suspect]
     Indication: PAIN
     Dosage: FREQUENCY DAILY
     Route: 064
     Dates: start: 20101107
  2. CLONAZEPAM [Suspect]
     Indication: PAIN
     Dosage: DOSE: 2.5 MG/ML ORAL SOLUTION IN DROPS
     Route: 064
     Dates: start: 20101107

REACTIONS (3)
  - VENTRICULAR SEPTAL DEFECT [None]
  - TRANSPOSITION OF THE GREAT VESSELS [None]
  - DELIVERY [None]
